FAERS Safety Report 23457451 (Version 3)
Quarter: 2024Q1

REPORT INFORMATION
  Report Type: Spontaneous
  Country: AU (occurrence: AU)
  Receive Date: 20240130
  Receipt Date: 20240227
  Transmission Date: 20240409
  Serious: Yes (Other)
  Sender: FDA-Public Use
  Company Number: AU-PFIZER INC-202400026052

PATIENT

DRUGS (1)
  1. MINIPRESS [Suspect]
     Active Substance: PRAZOSIN HYDROCHLORIDE
     Dosage: UNK, 2X/DAY

REACTIONS (4)
  - Choking [Unknown]
  - Product use complaint [Unknown]
  - Product physical issue [Unknown]
  - Cough [Unknown]
